FAERS Safety Report 10498851 (Version 5)
Quarter: 2016Q2

REPORT INFORMATION
  Report Type: Spontaneous
  Country: DK (occurrence: DK)
  Receive Date: 20141006
  Receipt Date: 20160512
  Transmission Date: 20160815
  Serious: Yes (Life-Threatening, Hospitalization, Disabling)
  Sender: FDA-Public Use
  Company Number: DK-B.I. PHARMACEUTICALS,INC./RIDGEFIELD-2014-BI-47452DB

PATIENT
  Age: 73 Year
  Sex: Female

DRUGS (7)
  1. HJERTEMAGNYL [Suspect]
     Active Substance: ASPIRIN\MAGNESIUM OXIDE
     Indication: ISCHAEMIC HEART DISEASE PROPHYLAXIS
     Dosage: 75 MG
     Route: 048
     Dates: start: 2002, end: 20140924
  2. SIMVASTATIN. [Concomitant]
     Active Substance: SIMVASTATIN
     Indication: HYPERCHOLESTEROLAEMIA
     Dosage: 40 MG
     Route: 065
     Dates: start: 2002
  3. VAGIFEM [Concomitant]
     Active Substance: ESTRADIOL
     Indication: PRODUCT USED FOR UNKNOWN INDICATION
     Route: 065
  4. METOPROLOL TARTRATE. [Concomitant]
     Active Substance: METOPROLOL TARTRATE
     Indication: CORONARY ARTERY THROMBOSIS
  5. METOPROLOL TARTRATE. [Concomitant]
     Active Substance: METOPROLOL TARTRATE
     Indication: HYPERTENSION
     Route: 065
  6. PRADAXA [Suspect]
     Active Substance: DABIGATRAN ETEXILATE MESYLATE
     Indication: ATRIAL FIBRILLATION
     Dosage: 300 MG
     Route: 048
     Dates: start: 20120427, end: 20140924
  7. HJERTEMAGNYL [Suspect]
     Active Substance: ASPIRIN\MAGNESIUM OXIDE
     Indication: CORONARY ARTERY THROMBOSIS

REACTIONS (26)
  - Vomiting [Unknown]
  - Cognitive disorder [Unknown]
  - Learning disability [Unknown]
  - Memory impairment [Unknown]
  - Infection [Unknown]
  - Facial paresis [Not Recovered/Not Resolved]
  - Coma [Unknown]
  - Cerebral ventricle dilatation [Unknown]
  - Asthenia [Unknown]
  - Brain midline shift [Not Recovered/Not Resolved]
  - Intracranial pressure increased [Unknown]
  - Headache [Unknown]
  - Neurologic neglect syndrome [Unknown]
  - Loss of consciousness [Not Recovered/Not Resolved]
  - Paralysis [Unknown]
  - Epilepsy [Unknown]
  - Shunt infection [Unknown]
  - Hemiparesis [Not Recovered/Not Resolved]
  - Dysphagia [Unknown]
  - Aphasia [Unknown]
  - CSF shunt operation [Unknown]
  - Cerebral haemorrhage [Recovered/Resolved with Sequelae]
  - VIth nerve paralysis [Unknown]
  - Wheelchair user [Unknown]
  - Affect lability [Unknown]
  - Apnoea [Unknown]

NARRATIVE: CASE EVENT DATE: 20140924
